FAERS Safety Report 8847379 (Version 2)
Quarter: 2013Q2

REPORT INFORMATION
  Report Type: Spontaneous
  Country: CA (occurrence: CA)
  Receive Date: 20121018
  Receipt Date: 20130529
  Transmission Date: 20140414
  Serious: Yes (Other)
  Sender: FDA-Public Use
  Company Number: CA-ELI_LILLY_AND_COMPANY-CA201210002040

PATIENT
  Age: 13 Year
  Sex: Male
  Weight: 65 kg

DRUGS (2)
  1. STRATTERA [Suspect]
     Indication: ATTENTION DEFICIT/HYPERACTIVITY DISORDER
     Dosage: 40 MG, QD
     Dates: start: 200904, end: 201107
  2. STRATTERA [Suspect]
     Dosage: 60 MG, QD
     Route: 048
     Dates: start: 201107, end: 20120120

REACTIONS (2)
  - Intentional self-injury [Recovered/Resolved]
  - Suicidal ideation [Recovered/Resolved]
